FAERS Safety Report 7559219-3 (Version None)
Quarter: 2011Q2

REPORT INFORMATION
  Report Type: 
  Country: None (occurrence: None)
  Receive Date: 20110613
  Receipt Date: 20110603
  Transmission Date: 20111010
  Serious: Yes (Hospitalization)
  Sender: FDA-Public Use
  Company Number: ACO_25082_2011

PATIENT
  Age: 75 Year
  Sex: Female
  Weight: 61.7 kg

DRUGS (2)
  1. NALTREXONE HYDROCHLORIDE [Suspect]
     Indication: MULTIPLE SCLEROSIS
     Dosage: 4.5 MG, QD, ORAL
     Route: 048
     Dates: end: 20101201
  2. AMPYRA [Suspect]
     Indication: GAIT DISTURBANCE
     Dosage: 10 MG, Q 12 HRS, ORAL
     Route: 048
     Dates: start: 20101001, end: 20101201

REACTIONS (1)
  - DIARRHOEA [None]
